FAERS Safety Report 7685944-X (Version None)
Quarter: 2011Q3

REPORT INFORMATION
  Report Type: 
  Country: None (occurrence: None)
  Receive Date: 20110816
  Receipt Date: 20110802
  Transmission Date: 20111222
  Serious: Yes (Other)
  Sender: FDA-Public Use
  Company Number: PHHY2011RO70391

PATIENT
  Age: 51 Year
  Sex: Female

DRUGS (2)
  1. BROMOCRIPTINE MESYLATE [Suspect]
     Indication: NEUROLEPTIC MALIGNANT SYNDROME
     Dosage: 20 MG, PER DAY
  2. AMANTADINE HCL [Suspect]
     Indication: NEUROLEPTIC MALIGNANT SYNDROME
     Dosage: 200 MG/DAY

REACTIONS (5)
  - RENAL FAILURE ACUTE [None]
  - PYREXIA [None]
  - BEDRIDDEN [None]
  - STUPOR [None]
  - BLOOD CREATINE PHOSPHOKINASE INCREASED [None]
